FAERS Safety Report 5084435-2 (Version None)
Quarter: 2006Q3

REPORT INFORMATION
  Report Type: 
  Country: None (occurrence: None)
  Receive Date: 20060821
  Receipt Date: 20060810
  Transmission Date: 20061208
  Serious: Yes (Other)
  Sender: FDA-Public Use
  Company Number: FR-GLAXOSMITHKLINE-B0433774A

PATIENT
  Age: 60 Year
  Sex: Male

DRUGS (2)
  1. ADARTREL [Suspect]
     Indication: RESTLESS LEGS SYNDROME
     Dosage: 2MG PER DAY
     Route: 048
  2. TADENAN [Concomitant]
     Route: 065

REACTIONS (5)
  - AGGRESSION [None]
  - DIZZINESS [None]
  - FATIGUE [None]
  - NERVOUSNESS [None]
  - ORTHOSTATIC HYPOTENSION [None]
